FAERS Safety Report 9668956 (Version 1)
Quarter: 2013Q4

REPORT INFORMATION
  Report Type: Spontaneous
  Country: US (occurrence: US)
  Receive Date: 20131105
  Receipt Date: 20131105
  Transmission Date: 20140711
  Serious: No
  Sender: FDA-Public Use
  Company Number: US-MALLINCKRODT-T201301804

PATIENT
  Sex: Female

DRUGS (1)
  1. PENNSAID TOPICAL [Suspect]
     Indication: ARTHRALGIA
     Dosage: UNK
     Route: 061

REACTIONS (5)
  - Accidental exposure to product [Unknown]
  - Eye discharge [Not Recovered/Not Resolved]
  - Eye swelling [None]
  - Ocular hyperaemia [Not Recovered/Not Resolved]
  - Eye irritation [None]
